FAERS Safety Report 5713451-X (Version None)
Quarter: 2008Q2

REPORT INFORMATION
  Report Type: 
  Country: None (occurrence: None)
  Receive Date: 20080422
  Receipt Date: 20080326
  Transmission Date: 20081010
  Serious: No
  Sender: FDA-Public Use
  Company Number: US-BOEHRINGER INGELHEIM GMBH, GERMANY-2008-BP-04668BP

PATIENT
  Age: 50 Year
  Sex: Female
  Weight: 136 kg

DRUGS (9)
  1. CATAPRES-TTS-1 [Suspect]
     Indication: HYPERTENSION
     Route: 061
     Dates: start: 20040601
  2. HYDROCHLOROTHIAZIDE [Concomitant]
     Route: 048
     Dates: start: 20030311
  3. AMLODIPINE [Concomitant]
     Route: 048
     Dates: start: 20040202
  4. ACCOLATE [Concomitant]
     Route: 048
     Dates: start: 20030624
  5. ATROVENT [Concomitant]
     Dates: start: 20060203
  6. RANITIDINE [Concomitant]
     Route: 048
     Dates: start: 20040412
  7. AVAPRO [Concomitant]
     Route: 048
  8. LEVOTHYROXINE SODIUM [Concomitant]
     Route: 048
     Dates: start: 20061204
  9. CLARITIN [Concomitant]
     Route: 048

REACTIONS (3)
  - APPLICATION SITE ERYTHEMA [None]
  - APPLICATION SITE IRRITATION [None]
  - APPLICATION SITE PAPULES [None]
